FAERS Safety Report 10483780 (Version 2)
Quarter: 2014Q4

REPORT INFORMATION
  Report Type: Spontaneous
  Country: US (occurrence: US)
  Receive Date: 20140930
  Receipt Date: 20141016
  Transmission Date: 20150528
  Serious: Yes (Other)
  Sender: FDA-Public Use
  Company Number: US-MYLANLABS-2014M1005439

PATIENT

DRUGS (9)
  1. LEVOTHYROXINE SODIUM TABLETS, USP [Suspect]
     Active Substance: LEVOTHYROXINE SODIUM
     Indication: HYPOTHYROIDISM
     Dosage: 50 ?G, QD
     Route: 048
     Dates: start: 2008
  2. DICLOFENAC SODIUM ER [Concomitant]
     Active Substance: DICLOFENAC SODIUM
     Indication: GASTROOESOPHAGEAL REFLUX DISEASE
     Dosage: 100 MG,UNK
  3. VITAMIN D2 [Concomitant]
     Active Substance: ERGOCALCIFEROL
     Dosage: 1.25 MG, UNK
  4. HYDROXYZINE HYDROCHLORIDE. [Concomitant]
     Active Substance: HYDROXYZINE HYDROCHLORIDE
     Indication: PRURITUS
  5. VITAMIN C [Concomitant]
     Active Substance: ASCORBIC ACID
     Dosage: UNK
  6. OMEGA 3                            /01333901/ [Concomitant]
     Dosage: UNK
  7. LEVOTHYROXINE SODIUM TABLETS, USP [Suspect]
     Active Substance: LEVOTHYROXINE SODIUM
     Indication: HYPERTONIC BLADDER
     Dosage: 50 ?G, UNK
  8. VITAMIN E                          /00110501/ [Concomitant]
     Dosage: UNK
  9. HYDROXYZINE HYDROCHLORIDE. [Concomitant]
     Active Substance: HYDROXYZINE HYDROCHLORIDE
     Indication: HYPERSENSITIVITY
     Dosage: 25 MG, UNK

REACTIONS (4)
  - Urine output increased [Recovered/Resolved]
  - Pollakiuria [Recovered/Resolved]
  - Sleep disorder [Recovered/Resolved]
  - Urinary retention [Recovered/Resolved]

NARRATIVE: CASE EVENT DATE: 2012
